FAERS Safety Report 8830531 (Version 1)
Quarter: 2012Q4

REPORT INFORMATION
  Report Type: 
  Country: US (occurrence: US)
  Receive Date: 20121009
  Receipt Date: 20121009
  Transmission Date: 20130627
  Serious: Yes (Other)
  Sender: FDA-Public Use
  Company Number: US-BRISTOL-MYERS SQUIBB COMPANY-16910333

PATIENT
  Age: 48 Year
  Sex: Male

DRUGS (1)
  1. NULOJIX [Suspect]
     Indication: IMMUNOSUPPRESSANT DRUG THERAPY
     Dosage: 2nd dose:21Jul12
3rd dose:01Aug12
4th dose:14Aug12
     Dates: start: 201007

REACTIONS (1)
  - Transplant rejection [Unknown]
